FAERS Safety Report 8840469 (Version 2)
Quarter: 2015Q3

REPORT INFORMATION
  Report Type: Report from Study
  Country: US (occurrence: US)
  Receive Date: 20121015
  Receipt Date: 20150921
  Transmission Date: 20151125
  Serious: Yes (Other)
  Sender: FDA-Public Use
  Company Number: US-ROCHE-1138085

PATIENT
  Sex: Female
  Weight: 39.1 kg

DRUGS (5)
  1. PROTROPIN [Suspect]
     Active Substance: SOMATREM
     Indication: DWARFISM
     Route: 065
     Dates: start: 19930520
  2. NUTROPIN [Suspect]
     Active Substance: SOMATROPIN
     Route: 058
  3. PROTROPIN [Suspect]
     Active Substance: SOMATREM
     Route: 065
  4. PROTROPIN [Suspect]
     Active Substance: SOMATREM
     Route: 065
  5. NUTROPIN [Suspect]
     Active Substance: SOMATROPIN
     Indication: DWARFISM
     Route: 058
     Dates: start: 19930520

REACTIONS (1)
  - Seizure [Unknown]
